FAERS Safety Report 22737188 (Version 7)
Quarter: 2024Q1

REPORT INFORMATION
  Report Type: Report from Study
  Country: DE (occurrence: DE)
  Receive Date: 20230721
  Receipt Date: 20240228
  Transmission Date: 20240410
  Serious: Yes (Other)
  Sender: FDA-Public Use
  Company Number: DE-PFM-2022-06389

PATIENT

DRUGS (11)
  1. NERATINIB [Suspect]
     Active Substance: NERATINIB
     Indication: Breast cancer
     Dosage: 120 MG, DAILY
     Route: 048
     Dates: start: 20220723
  2. NERATINIB [Suspect]
     Active Substance: NERATINIB
     Dosage: 200 MG, DAILY
     Route: 048
  3. NERATINIB [Suspect]
     Active Substance: NERATINIB
     Dosage: 240 MG, DAILY
     Route: 048
  4. NERATINIB [Suspect]
     Active Substance: NERATINIB
     Dosage: 160 MG, DAILY
     Route: 048
     Dates: end: 20230722
  5. LOPERAMIDE [Concomitant]
     Active Substance: LOPERAMIDE
     Indication: Prophylaxis against diarrhoea
     Dosage: 2 MG, PRN (AS NEEDED)
     Route: 048
     Dates: start: 20210721, end: 20230722
  6. DIMETHINDENE [Concomitant]
     Active Substance: DIMETHINDENE
     Indication: Prophylaxis against diarrhoea
     Dosage: 1 MG, PRN (AS NEEDED)
     Route: 061
     Dates: start: 20220901, end: 20220915
  7. LETROZOLE [Concomitant]
     Active Substance: LETROZOLE
     Indication: Breast cancer
     Dosage: UNK
     Route: 065
     Dates: start: 2021
  8. LETROZOLE [Concomitant]
     Active Substance: LETROZOLE
     Indication: Prophylaxis
     Dosage: 2.5 MG, DAILY
     Route: 048
     Dates: start: 20230723
  9. ESCITALOPRAM [Concomitant]
     Active Substance: ESCITALOPRAM OXALATE
     Indication: Prophylaxis
     Dosage: 5 MG, PRN (AS NEEDED)
     Route: 048
  10. ZOLEDRONIC ACID [Concomitant]
     Active Substance: ZOLEDRONIC ACID
     Indication: Prophylaxis
     Dosage: 4.5 MG, EVERY 6 MONTHS
     Route: 058
     Dates: start: 20230119
  11. OMNI BIOTIC 6 [Concomitant]
     Indication: Prophylaxis against diarrhoea
     Dosage: 2 UNK, DAILY
     Route: 048
     Dates: start: 20230722, end: 20230805

REACTIONS (16)
  - Neuropathy peripheral [Recovered/Resolved]
  - Nasal dryness [Recovered/Resolved]
  - Diarrhoea [Recovered/Resolved]
  - Fatigue [Recovered/Resolved]
  - Mucosal inflammation [Recovered/Resolved]
  - Disturbance in attention [Recovered/Resolved]
  - Eczema [Recovered/Resolved]
  - Pain in extremity [Recovered/Resolved]
  - Oedema peripheral [Recovered/Resolved]
  - Arthralgia [Recovered/Resolved]
  - Coronavirus infection [Recovered/Resolved]
  - Constipation [Recovered/Resolved]
  - Pain in extremity [Recovered/Resolved]
  - Bone pain [Recovered/Resolved]
  - Prescribed underdose [Unknown]
  - Off label use [Unknown]

NARRATIVE: CASE EVENT DATE: 20220701
